FAERS Safety Report 5868866-6 (Version None)
Quarter: 2008Q3

REPORT INFORMATION
  Report Type: 
  Country: None (occurrence: None)
  Receive Date: 20080903
  Receipt Date: 20080825
  Transmission Date: 20090109
  Serious: Yes (Hospitalization)
  Sender: FDA-Public Use
  Company Number: US-JNJFOC-20080806013

PATIENT
  Sex: Male
  Weight: 113.4 kg

DRUGS (3)
  1. TOPAMAX [Suspect]
     Indication: CONVULSION
     Dosage: ORIGINALLY REPORTED AS 100 MG TWICE DAILY, THEN FOLLOW UP INDICATED 400 MG TO 600 MG DAILY
     Route: 048
     Dates: start: 20070101
  2. AUGMENTIN '125' [Interacting]
     Indication: SINUSITIS
  3. ENALAPRIL MALEATE [Concomitant]
     Indication: BLOOD PRESSURE

REACTIONS (3)
  - CONVULSION [None]
  - DRUG INTERACTION [None]
  - THERAPEUTIC RESPONSE DECREASED [None]
